FAERS Safety Report 15686868 (Version 2)
Quarter: 2018Q4

REPORT INFORMATION
  Report Type: Spontaneous
  Country: BR (occurrence: BR)
  Receive Date: 20181204
  Receipt Date: 20181211
  Transmission Date: 20190205
  Serious: Yes (Other)
  Sender: FDA-Public Use
  Company Number: BR-PFIZER INC-2018489827

PATIENT
  Age: 61 Year
  Sex: Female

DRUGS (2)
  1. LORAX [Suspect]
     Active Substance: LORAZEPAM
     Indication: NERVOUSNESS
     Dosage: 2 MG, DAILY
     Dates: start: 1986
  2. LORAX [Suspect]
     Active Substance: LORAZEPAM
     Dosage: 3 MG, DAILY (1 TABLET AT NIGHT AND 1/2 TABLET IN THE MORNING BY SPLITTING THE TABLET IN THE MIDDLE)

REACTIONS (5)
  - Anger [Unknown]
  - Dependence [Unknown]
  - Product use in unapproved indication [Unknown]
  - Wrong technique in product usage process [Unknown]
  - Hepatitis C [Unknown]
